FAERS Safety Report 21552331 (Version 1)
Quarter: 2022Q4

REPORT INFORMATION
  Report Type: Spontaneous
  Country: GB (occurrence: GB)
  Receive Date: 20221104
  Receipt Date: 20221104
  Transmission Date: 20230113
  Serious: Yes (Other)
  Sender: FDA-Public Use
  Company Number: None

PATIENT
  Age: 64 Year
  Sex: Male
  Weight: 125 kg

DRUGS (2)
  1. RYBELSUS [Suspect]
     Active Substance: SEMAGLUTIDE
     Indication: Type 2 diabetes mellitus
     Dosage: 3 MG (TAKE ON AN EMPTY STOMACH WITH UP TO 120ML WATER, WAIT AT LEAST 30 MINUTES BEFORE CONSUMING ANY
     Dates: start: 20220713, end: 20220927
  2. LINAGLIPTIN [Concomitant]
     Active Substance: LINAGLIPTIN
     Indication: Type 2 diabetes mellitus
     Dosage: 5 MG, QD
     Dates: start: 20220927

REACTIONS (2)
  - Gastrointestinal disorder [Recovering/Resolving]
  - Eructation [Recovering/Resolving]
